FAERS Safety Report 5672544-6 (Version None)
Quarter: 2008Q1

REPORT INFORMATION
  Report Type: 
  Country: None (occurrence: None)
  Receive Date: 20080319
  Receipt Date: 20080304
  Transmission Date: 20080703
  Serious: Yes (Hospitalization)
  Sender: FDA-Public Use
  Company Number: AU-GENENTECH-257528

PATIENT
  Sex: Male

DRUGS (3)
  1. BEVACIZUMAB [Suspect]
     Indication: COLORECTAL CANCER METASTATIC
     Dosage: 560 MG, Q3W
     Route: 042
     Dates: start: 20051101
  2. CAPECITABINE [Suspect]
     Indication: COLORECTAL CANCER METASTATIC
     Dosage: 2500 MG/M2, D1-14/Q3W
     Route: 048
     Dates: start: 20051101
  3. MITOMYCIN [Suspect]
     Indication: COLORECTAL CANCER METASTATIC
     Dosage: 13 MG, Q6W
     Route: 042
     Dates: start: 20051101

REACTIONS (3)
  - HAEMOLYTIC URAEMIC SYNDROME [None]
  - NEPHRITIS INTERSTITIAL [None]
  - THROMBOCYTOPENIA [None]
